FAERS Safety Report 11765179 (Version 1)
Quarter: 2015Q4

REPORT INFORMATION
  Report Type: Spontaneous
  Country: US (occurrence: US)
  Receive Date: 20151120
  Receipt Date: 20151120
  Transmission Date: 20160304
  Serious: No
  Sender: FDA-Public Use
  Company Number: US-ELI_LILLY_AND_COMPANY-US201312005766

PATIENT
  Sex: Female

DRUGS (5)
  1. MELOXICAM. [Concomitant]
     Active Substance: MELOXICAM
  2. FORTEO [Suspect]
     Active Substance: TERIPARATIDE
     Indication: OSTEOPOROSIS
     Dosage: UNK, QD
     Route: 065
     Dates: start: 20130313
  3. KLONOPIN [Concomitant]
     Active Substance: CLONAZEPAM
     Indication: ANXIETY
  4. BABY ASPIRIN [Concomitant]
     Active Substance: ASPIRIN
  5. LACTULOSE. [Concomitant]
     Active Substance: LACTULOSE
     Dosage: UNK, BID
     Route: 065

REACTIONS (3)
  - Weight decreased [Unknown]
  - Dry age-related macular degeneration [Unknown]
  - Medication error [Unknown]

NARRATIVE: CASE EVENT DATE: 2013
